FAERS Safety Report 7209440-9 (Version None)
Quarter: 2011Q1

REPORT INFORMATION
  Report Type: 
  Country: None (occurrence: None)
  Receive Date: 20110104
  Receipt Date: 20100930
  Transmission Date: 20110831
  Serious: Yes (Other)
  Sender: FDA-Public Use
  Company Number: US-BAYER-201018402NA

PATIENT
  Sex: Female
  Weight: 108.84 kg

DRUGS (19)
  1. OCELLA [Suspect]
     Indication: ORAL CONTRACEPTION
  2. OCELLA [Suspect]
     Indication: OVARIAN CYST
  3. YAZ [Suspect]
     Indication: PRODUCT USED FOR UNKNOWN INDICATION
     Dosage: AS USED DOSE: UNK
     Route: 048
     Dates: start: 20030101, end: 20091215
  4. PHENERGAN [Concomitant]
  5. YASMIN [Suspect]
     Indication: OVARIAN CYST
     Dosage: UNK
     Dates: start: 20081111, end: 20091218
  6. LISINOPRIL [Concomitant]
     Indication: HYPERTENSION
     Dates: start: 20070101
  7. LOESTRIN 1.5/30 [Concomitant]
     Indication: ORAL CONTRACEPTION
  8. LORTAB [Suspect]
  9. ANAPROX [Concomitant]
     Indication: PRODUCT USED FOR UNKNOWN INDICATION
     Dosage: UNK UNK, PRN
     Dates: start: 20060222
  10. ZITHROMAX [Concomitant]
     Dates: start: 20060101
  11. IBUPROFEN [Concomitant]
     Indication: PRODUCT USED FOR UNKNOWN INDICATION
     Dosage: UNK UNK, PRN
     Dates: start: 20050606
  12. YASMIN [Suspect]
     Indication: MENSTRUATION IRREGULAR
     Dosage: UNK
     Route: 048
     Dates: start: 20050426, end: 20071101
  13. ALBUTEROL INHALER [Concomitant]
  14. APAP TAB [Suspect]
     Indication: PAIN
  15. OCELLA [Suspect]
     Indication: MENSTRUATION IRREGULAR
     Route: 048
     Dates: start: 20030401, end: 20091115
  16. UNCODEABLE ^UNCLASSIFIABLE^ [Concomitant]
     Dates: start: 20020101, end: 20050101
  17. YASMIN [Suspect]
     Indication: ORAL CONTRACEPTION
     Dosage: UNK
     Dates: start: 20071213, end: 20081029
  18. ATENOLOL [Concomitant]
     Indication: HYPERTENSION
     Dates: start: 20090101, end: 20100615
  19. PRILOSEC [Concomitant]

REACTIONS (6)
  - CHOLECYSTITIS CHRONIC [None]
  - VOMITING [None]
  - ABDOMINAL PAIN UPPER [None]
  - DIARRHOEA [None]
  - CHOLELITHIASIS [None]
  - CHOLESTEROSIS [None]
